FAERS Safety Report 4284183-2 (Version None)
Quarter: 2004Q1

REPORT INFORMATION
  Report Type: 
  Country: None (occurrence: None)
  Receive Date: 20040130
  Receipt Date: 20030918
  Transmission Date: 20041129
  Serious: Yes (Hospitalization, Other)
  Sender: FDA-Public Use
  Company Number: US_000643477

PATIENT
  Age: 63 Year
  Sex: Male
  Weight: 82 kg

DRUGS (10)
  1. ILETIN [Suspect]
     Indication: DIABETES MELLITUS
     Dates: end: 20000801
  2. ILETIN [Suspect]
     Indication: DIABETES MELLITUS
     Dates: end: 20000801
  3. HUMULIN R [Suspect]
     Indication: DIABETES MELLITUS
     Dosage: 22 UL IN THE MORNING
     Dates: start: 19900101, end: 20000801
  4. HUMULIN U [Suspect]
     Indication: DIABETES MELLITUS
     Dosage: 10 UL IN THE MORNING
     Dates: start: 19900101, end: 20000801
  5. HUMULIN L [Suspect]
     Indication: DIABETES MELLITUS
     Dosage: 22 UL IN THE MORNING
     Dates: start: 19900101, end: 20000801
  6. ILENTIN-PORK LENTE INSULIN (INSULIN, ANIMAL) [Suspect]
     Indication: DIABETES MELLITUS
     Dosage: 22 UL IN THE MORNING
     Dates: start: 20000101
  7. ILETIN-PORK REGULAR INSULIN (INSULUIN, ANIMAL) [Suspect]
     Indication: DIABETES MELLITUS
     Dosage: 22 UL IN THE MORNING
     Dates: start: 20000101
  8. ILETIN-PORK NPH INSULIN (INSULUIN, ANIMAL) [Suspect]
     Indication: DIABETES MELLITUS
  9. HUMALOG [Concomitant]
  10. ASPIRIN [Concomitant]

REACTIONS (22)
  - ARTHROPATHY [None]
  - ASTHENIA [None]
  - BALANCE DISORDER [None]
  - BLINDNESS TRANSIENT [None]
  - CEREBROVASCULAR ACCIDENT [None]
  - DIABETES MELLITUS INADEQUATE CONTROL [None]
  - DIABETIC RETINOPATHY [None]
  - HYPERCHOLESTEROLAEMIA [None]
  - HYPERGLYCAEMIA [None]
  - HYPERTENSION [None]
  - HYPOGLYCAEMIA [None]
  - HYPOGLYCAEMIA UNAWARENESS [None]
  - LOSS OF CONSCIOUSNESS [None]
  - MUSCULAR WEAKNESS [None]
  - NASOPHARYNGITIS [None]
  - NEUROPATHY [None]
  - PAIN IN EXTREMITY [None]
  - POLLAKIURIA [None]
  - RETINAL MICROANEURYSMS [None]
  - THERAPY NON-RESPONDER [None]
  - THIRST [None]
  - TREATMENT NONCOMPLIANCE [None]
